FAERS Safety Report 4800067-2 (Version None)
Quarter: 2005Q4

REPORT INFORMATION
  Report Type: 
  Country: None (occurrence: None)
  Receive Date: 20051017
  Receipt Date: 20050916
  Transmission Date: 20060501
  Serious: Yes (Other)
  Sender: FDA-Public Use
  Company Number: 2005AP04913

PATIENT
  Age: 11 Year
  Sex: Female
  Weight: 33 kg

DRUGS (9)
  1. MEROPEN [Suspect]
     Indication: PANCREATITIS ACUTE
     Route: 041
     Dates: start: 20050726, end: 20050726
  2. IOPAMIRON 300 [Concomitant]
     Indication: PANCREATITIS ACUTE
     Route: 051
     Dates: start: 20050726, end: 20050726
  3. FOY [Concomitant]
     Indication: PANCREATITIS ACUTE
     Route: 041
     Dates: start: 20050726, end: 20050728
  4. MIRACLID [Concomitant]
     Indication: PANCREATITIS ACUTE
     Route: 041
     Dates: start: 20050726, end: 20050728
  5. ATRAX-P [Concomitant]
     Indication: ANAPHYLAXIS PROPHYLAXIS
     Route: 041
     Dates: start: 20050726, end: 20050728
  6. GASTER [Concomitant]
     Indication: PANCREATITIS ACUTE
     Route: 042
     Dates: start: 20050726, end: 20050731
  7. ROCEPHIN [Concomitant]
     Indication: PANCREATITIS ACUTE
     Route: 041
     Dates: start: 20050726, end: 20050731
  8. SOLU-MEDROL [Concomitant]
     Indication: ANAPHYLAXIS PROPHYLAXIS
     Route: 042
     Dates: start: 20050726, end: 20050731
  9. NEOPHYLLIN [Concomitant]
     Indication: ANAPHYLAXIS PROPHYLAXIS
     Route: 041
     Dates: start: 20050726, end: 20050731

REACTIONS (5)
  - COUGH [None]
  - DYSPNOEA [None]
  - ERYTHEMA [None]
  - SWELLING [None]
  - URTICARIA [None]
